FAERS Safety Report 5084477-7 (Version None)
Quarter: 2006Q3

REPORT INFORMATION
  Report Type: 
  Country: None (occurrence: None)
  Receive Date: 20060821
  Receipt Date: 20060809
  Transmission Date: 20061208
  Serious: Yes (Other)
  Sender: FDA-Public Use
  Company Number: US-AVENTIS-200616638US

PATIENT
  Age: 35 Year
  Sex: Female

DRUGS (2)
  1. LOVENOX [Suspect]
     Route: 058
  2. NSAID'S [Concomitant]
     Dosage: DOSE: UNKNOWN

REACTIONS (3)
  - COMA [None]
  - SUBARACHNOID HAEMORRHAGE [None]
  - SUBDURAL HAEMATOMA [None]
